FAERS Safety Report 16944919 (Version 1)
Quarter: 2019Q4

REPORT INFORMATION
  Report Type: Spontaneous
  Country: GB (occurrence: GB)
  Receive Date: 20191022
  Receipt Date: 20191022
  Transmission Date: 20200122
  Serious: Yes (Hospitalization)
  Sender: FDA-Public Use
  Company Number: GB-MYLANLABS-09P-167-0795956-00

PATIENT
  Age: 42 Year
  Sex: Male

DRUGS (3)
  1. SPIRONOLACTONE. [Suspect]
     Active Substance: SPIRONOLACTONE
     Indication: TRANSGENDER HORMONAL THERAPY
     Dosage: 200 MILLIGRAM, QD
     Route: 048
  2. ETHINYLESTRADIOL [Suspect]
     Active Substance: ETHINYL ESTRADIOL
     Indication: TRANSGENDER HORMONAL THERAPY
     Dosage: 30 MILLIGRAM, QD
     Route: 048
  3. ESTRADIOL. [Suspect]
     Active Substance: ESTRADIOL
     Dosage: 100 MILLIGRAM, QD
     Route: 062

REACTIONS (3)
  - Pulmonary embolism [Recovering/Resolving]
  - Off label use [Unknown]
  - Drug abuse [Unknown]
